FAERS Safety Report 8364180-8 (Version None)
Quarter: 2012Q2

REPORT INFORMATION
  Report Type: 
  Country: None (occurrence: None)
  Receive Date: 20120516
  Receipt Date: 20120507
  Transmission Date: 20120825
  Serious: Yes (Other)
  Sender: FDA-Public Use
  Company Number: JP-ASTRAZENECA-2012SE30135

PATIENT
  Age: 66 Year
  Sex: Female

DRUGS (1)
  1. XYLOCAINE [Suspect]
     Indication: FACET JOINT BLOCK
     Route: 052
     Dates: start: 20101016

REACTIONS (3)
  - MUSCULAR WEAKNESS [None]
  - FALL [None]
  - LUMBAR VERTEBRAL FRACTURE [None]
